FAERS Safety Report 8354229-0 (Version None)
Quarter: 2012Q2

REPORT INFORMATION
  Report Type: 
  Country: None (occurrence: None)
  Receive Date: 20120511
  Receipt Date: 20120507
  Transmission Date: 20120825
  Serious: Yes (Hospitalization)
  Sender: FDA-Public Use
  Company Number: US-ROCHE-1066766

PATIENT
  Sex: Male

DRUGS (3)
  1. PEGASYS [Suspect]
  2. RIBAVIRIN [Suspect]
     Indication: PRODUCT USED FOR UNKNOWN INDICATION
  3. INCIVEK [Suspect]
     Indication: PRODUCT USED FOR UNKNOWN INDICATION

REACTIONS (3)
  - FULL BLOOD COUNT DECREASED [None]
  - NEPHROLITHIASIS [None]
  - ANAEMIA [None]
